FAERS Safety Report 26162927 (Version 1)
Quarter: 2025Q4

REPORT INFORMATION
  Report Type: Spontaneous
  Country: US (occurrence: None)
  Receive Date: 20251215
  Receipt Date: 20251215
  Transmission Date: 20260118
  Serious: Yes (Other)
  Sender: FDA-CTU
  Company Number: None

PATIENT
  Age: 61 Year
  Sex: Female
  Weight: 100 kg

DRUGS (1)
  1. AZITHROMYCIN [Suspect]
     Active Substance: AZITHROMYCIN
     Dosage: FREQUENCY : DAILY;
     Route: 042
     Dates: start: 20251202, end: 20251206

REACTIONS (3)
  - Infusion site pain [None]
  - Infusion site pain [None]
  - Middle insomnia [None]

NARRATIVE: CASE EVENT DATE: 20251205
